FAERS Safety Report 16866246 (Version 1)
Quarter: 2019Q3

REPORT INFORMATION
  Report Type: Spontaneous
  Country: US (occurrence: US)
  Receive Date: 20190930
  Receipt Date: 20190930
  Transmission Date: 20191005
  Serious: No
  Sender: FDA-Public Use
  Company Number: US-ALLERGAN-1911835US

PATIENT
  Age: 14 Year
  Sex: Female

DRUGS (4)
  1. VRAYLAR [Suspect]
     Active Substance: CARIPRAZINE
     Indication: BIPOLAR DISORDER
     Dosage: 1.5 MG, QAM
     Route: 048
     Dates: start: 20190215
  2. TRILEPTAL [Concomitant]
     Active Substance: OXCARBAZEPINE
     Dosage: 150MG AT NIGHT AND 300MG  QAM
  3. RISPERDAL [Concomitant]
     Active Substance: RISPERIDONE
     Dosage: 0.25 MG, QHS
  4. LITHIUM. [Concomitant]
     Active Substance: LITHIUM
     Dosage: 300 MG, QHS

REACTIONS (1)
  - Off label use [Unknown]

NARRATIVE: CASE EVENT DATE: 201902
